FAERS Safety Report 23953585 (Version 1)
Quarter: 2024Q2

REPORT INFORMATION
  Report Type: Spontaneous
  Country: CN (occurrence: CN)
  Receive Date: 20240608
  Receipt Date: 20240608
  Transmission Date: 20240716
  Serious: Yes (Hospitalization, Other)
  Sender: FDA-Public Use
  Company Number: CN-IPCA LABORATORIES LIMITED-IPC-2024-CN-001332

PATIENT

DRUGS (6)
  1. WARFARIN [Interacting]
     Active Substance: WARFARIN
     Indication: Aortic valve replacement
     Dosage: 7.5 MILLIGRAM, QD
     Route: 048
  2. WARFARIN [Interacting]
     Active Substance: WARFARIN
     Dosage: 5 MILLIGRAM, QD
     Route: 048
     Dates: start: 202106
  3. WARFARIN [Interacting]
     Active Substance: WARFARIN
     Dosage: 6 MILLIGRAM, QD
     Route: 048
  4. WARFARIN [Interacting]
     Active Substance: WARFARIN
     Dosage: 10 MILLIGRAM, QD
     Route: 048
  5. ASCORBIC ACID [Interacting]
     Active Substance: ASCORBIC ACID
     Indication: Anaemia
     Dosage: 0.2 GRAM, BID
     Route: 048
  6. HEPARIN SODIUM [Concomitant]
     Active Substance: HEPARIN SODIUM
     Indication: Product used for unknown indication
     Dosage: 4000 INTERNATIONAL UNIT, BID
     Route: 058

REACTIONS (9)
  - Thrombocytopenia [Recovering/Resolving]
  - Leukopenia [Recovering/Resolving]
  - Anticoagulation drug level below therapeutic [Recovering/Resolving]
  - Incision site haemorrhage [Recovering/Resolving]
  - Gingival bleeding [Recovering/Resolving]
  - Ecchymosis [Recovering/Resolving]
  - Iron deficiency anaemia [Recovering/Resolving]
  - Drug resistance [Unknown]
  - Drug interaction [Unknown]
